FAERS Safety Report 18637725 (Version 2)
Quarter: 2021Q1

REPORT INFORMATION
  Report Type: Spontaneous
  Country: US (occurrence: US)
  Receive Date: 20201218
  Receipt Date: 20210308
  Transmission Date: 20210419
  Serious: Yes (Other)
  Sender: FDA-Public Use
  Company Number: US-PFIZER INC-2020499014

PATIENT
  Age: 57 Year
  Sex: Male

DRUGS (27)
  1. PROTONIX [Suspect]
     Active Substance: PANTOPRAZOLE SODIUM
     Dosage: 40 MG
     Dates: start: 20111130
  2. PRILOSEC [Suspect]
     Active Substance: OMEPRAZOLE MAGNESIUM
     Indication: GASTROOESOPHAGEAL REFLUX DISEASE
     Dosage: 20 MG, 1X/DAY
     Dates: start: 1998, end: 2005
  3. OMEPRAZOLE. [Suspect]
     Active Substance: OMEPRAZOLE
     Indication: GASTROOESOPHAGEAL REFLUX DISEASE
     Dosage: 20 MG, 1X/DAY
     Dates: start: 20070831, end: 20100326
  4. AMOXICILLIN. [Concomitant]
     Active Substance: AMOXICILLIN
     Indication: ANTIBIOTIC THERAPY
     Dosage: UNK
     Dates: start: 201201, end: 201601
  5. LOVAZA [Concomitant]
     Active Substance: OMEGA-3-ACID ETHYL ESTERS
     Indication: CARDIAC FAILURE
     Dosage: UNK
     Dates: start: 201101, end: 201406
  6. TRIAZOLAM. [Concomitant]
     Active Substance: TRIAZOLAM
     Indication: ANXIETY
     Dosage: UNK
     Dates: start: 201201, end: 201402
  7. TRIAZOLAM. [Concomitant]
     Active Substance: TRIAZOLAM
     Indication: SLEEP DISORDER
  8. PROTONIX [Suspect]
     Active Substance: PANTOPRAZOLE SODIUM
     Dosage: 40 MG
     Dates: start: 20111224
  9. PROTONIX [Suspect]
     Active Substance: PANTOPRAZOLE SODIUM
     Dosage: 40 MG
     Dates: start: 20120106, end: 20120107
  10. LUNESTA [Concomitant]
     Active Substance: ESZOPICLONE
     Indication: SLEEP DISORDER
     Dosage: UNK
     Dates: start: 201101, end: 201412
  11. PANTOPRAZOLE [Suspect]
     Active Substance: PANTOPRAZOLE
     Indication: GASTROOESOPHAGEAL REFLUX DISEASE
     Dosage: 40 MG, 1X/DAY
     Dates: start: 20110404, end: 20140531
  12. CALCIUM ACETATE. [Concomitant]
     Active Substance: CALCIUM ACETATE
     Indication: MINERAL SUPPLEMENTATION
     Dosage: UNK
     Dates: start: 20110111, end: 20130822
  13. LEVOTHYROXINE. [Concomitant]
     Active Substance: LEVOTHYROXINE
     Indication: HYPOTHYROIDISM
     Dosage: UNK
     Dates: start: 1997
  14. METOPROLOL TARTRATE. [Concomitant]
     Active Substance: METOPROLOL TARTRATE
     Indication: BLOOD PRESSURE ABNORMAL
     Dosage: UNK
     Dates: start: 201203, end: 201702
  15. PROTONIX [Suspect]
     Active Substance: PANTOPRAZOLE SODIUM
     Dosage: 40 MG
     Dates: start: 20120117, end: 20120118
  16. PROTONIX [Suspect]
     Active Substance: PANTOPRAZOLE SODIUM
     Dosage: 40 MG
     Dates: start: 20140530, end: 20140601
  17. NEXIUM [Suspect]
     Active Substance: ESOMEPRAZOLE MAGNESIUM
     Indication: GASTROOESOPHAGEAL REFLUX DISEASE
     Dosage: 40 MG, 1X/DAY (ON AND OFF)
     Dates: start: 2001, end: 20200513
  18. ESOMEPRAZOLE. [Suspect]
     Active Substance: ESOMEPRAZOLE MAGNESIUM
     Dosage: 40 MG (ON AND OFF)
     Dates: start: 201112, end: 201605
  19. PROTONIX [Suspect]
     Active Substance: PANTOPRAZOLE SODIUM
     Indication: GASTROOESOPHAGEAL REFLUX DISEASE
     Dosage: 40 MG
     Dates: start: 20110403, end: 20110406
  20. VITAMIN B12 [Concomitant]
     Active Substance: CYANOCOBALAMIN
     Indication: VITAMIN B12 DEFICIENCY
     Dosage: UNK
  21. ESOMEPRAZOLE. [Suspect]
     Active Substance: ESOMEPRAZOLE MAGNESIUM
     Indication: GASTROOESOPHAGEAL REFLUX DISEASE
     Dosage: 40 MG, 1X/DAY
     Dates: start: 20110224
  22. DOXYCYCLINE. [Concomitant]
     Active Substance: DOXYCYCLINE
     Indication: ANTIBIOTIC THERAPY
     Dosage: UNK
     Dates: start: 201201, end: 201611
  23. TACROLIMUS. [Concomitant]
     Active Substance: TACROLIMUS
     Dosage: UNK
     Dates: start: 201310
  24. PROTONIX [Suspect]
     Active Substance: PANTOPRAZOLE SODIUM
     Dosage: 40 MG
     Dates: start: 20120330, end: 20120331
  25. PROTONIX [Suspect]
     Active Substance: PANTOPRAZOLE SODIUM
     Dosage: 40 MG, 1X/DAY
     Dates: start: 20110403, end: 20120213
  26. HYDRALAZINE HCL [Concomitant]
     Active Substance: HYDRALAZINE HYDROCHLORIDE
     Indication: VASODILATATION
     Dosage: UNK
     Dates: start: 201101, end: 201107
  27. MYFORTIC [Concomitant]
     Active Substance: MYCOPHENOLATE SODIUM
     Dosage: UNK
     Dates: start: 201310

REACTIONS (4)
  - Chronic kidney disease [Not Recovered/Not Resolved]
  - Gastrooesophageal reflux disease [Not Recovered/Not Resolved]
  - Acute kidney injury [Not Recovered/Not Resolved]
  - End stage renal disease [Not Recovered/Not Resolved]

NARRATIVE: CASE EVENT DATE: 201010
